FAERS Safety Report 6047346-1 (Version None)
Quarter: 2009Q1

REPORT INFORMATION
  Report Type: 
  Country: None (occurrence: None)
  Receive Date: 20090122
  Receipt Date: 20090107
  Transmission Date: 20090719
  Serious: Yes (Hospitalization)
  Sender: FDA-Public Use
  Company Number: CA-GENENTECH-275587

PATIENT
  Sex: Female

DRUGS (24)
  1. BLINDED BEVACIZUMAB [Suspect]
     Indication: B-CELL LYMPHOMA
     Dosage: 1 UNK, Q3W
     Route: 042
     Dates: start: 20080716
  2. CYCLOPHOSPHAMIDE [Suspect]
     Indication: B-CELL LYMPHOMA
     Dosage: 1 UNK, Q3W
     Route: 042
     Dates: start: 20080716
  3. DOXORUBICIN HCL [Suspect]
     Indication: B-CELL LYMPHOMA
     Dosage: 1 UNK, Q3W
     Route: 042
     Dates: start: 20080716
  4. BLINDED PLACEBO [Suspect]
     Indication: B-CELL LYMPHOMA
     Dosage: 1 UNK, Q3W
     Route: 042
     Dates: start: 20080716
  5. PREDNISONE TAB [Suspect]
     Indication: B-CELL LYMPHOMA
     Dosage: 1 UNK, Q3W
     Route: 042
     Dates: start: 20080716
  6. BLINDED RITUXIMAB [Suspect]
     Indication: B-CELL LYMPHOMA
     Dosage: 1 UNK, Q3W
     Route: 042
     Dates: start: 20080716
  7. VINCRISTINE [Suspect]
     Indication: B-CELL LYMPHOMA
     Dosage: 1 UNK, Q3W
     Route: 042
     Dates: start: 20080716
  8. RITUXAN [Suspect]
     Indication: B-CELL LYMPHOMA
     Dosage: 686 MG, Q3W
     Route: 042
     Dates: start: 20080717
  9. CYCLOPHOSPHAMIDE [Suspect]
     Indication: B-CELL LYMPHOMA
     Dosage: 1373 MG, Q3W
     Route: 042
     Dates: start: 20080717
  10. VINCRISTINE [Suspect]
     Indication: B-CELL LYMPHOMA
     Dosage: 2 MG, Q3W
     Route: 042
     Dates: start: 20080717
  11. DOXORUBICIN HCL [Suspect]
     Indication: B-CELL LYMPHOMA
     Dosage: 92 MG, Q3W
     Route: 042
     Dates: start: 20080717
  12. PREDNISONE [Suspect]
     Indication: B-CELL LYMPHOMA
     Dosage: 100 MG, QDX5D/21DC
     Route: 048
     Dates: start: 20080717
  13. DIOVAN [Concomitant]
     Indication: DRUG USE FOR UNKNOWN INDICATION
     Dosage: UNK
     Dates: start: 19981215
  14. PAROXETINE HCL [Concomitant]
     Indication: DRUG USE FOR UNKNOWN INDICATION
     Dosage: UNK
     Dates: start: 20051121
  15. VITAMIN D [Concomitant]
     Indication: DRUG USE FOR UNKNOWN INDICATION
     Dosage: UNK
     Dates: start: 20050630
  16. CALCIUM [Concomitant]
     Indication: DRUG USE FOR UNKNOWN INDICATION
     Dosage: UNK
     Dates: start: 20060101
  17. SENNA [Concomitant]
     Indication: DRUG USE FOR UNKNOWN INDICATION
     Dosage: UNK
     Dates: start: 20080720
  18. COLACE [Concomitant]
     Indication: DRUG USE FOR UNKNOWN INDICATION
     Dosage: UNK
     Dates: start: 20080720
  19. MULTI-VITAMIN [Concomitant]
     Indication: DRUG USE FOR UNKNOWN INDICATION
     Dosage: UNK
     Dates: start: 20080725
  20. HYDROCHLOROTHIAZIDE [Concomitant]
     Indication: DRUG USE FOR UNKNOWN INDICATION
     Dosage: UNK
     Dates: start: 20080828
  21. MOUTHWASH NOS [Concomitant]
     Indication: DRUG USE FOR UNKNOWN INDICATION
     Dosage: UNK
     Dates: start: 20081001
  22. TUMS [Concomitant]
     Indication: DRUG USE FOR UNKNOWN INDICATION
     Dosage: UNK
     Dates: start: 20080630
  23. RECOMBINANT GCSF [Concomitant]
     Indication: DRUG USE FOR UNKNOWN INDICATION
     Dosage: UNK
     Dates: start: 20081223, end: 20081227
  24. PAXIL [Concomitant]
     Indication: DRUG USE FOR UNKNOWN INDICATION
     Dosage: UNK
     Dates: start: 20051121

REACTIONS (1)
  - FEBRILE NEUTROPENIA [None]
